FAERS Safety Report 14517269 (Version 1)
Quarter: 2018Q1

REPORT INFORMATION
  Report Type: Report from Study
  Country: US (occurrence: US)
  Receive Date: 20180212
  Receipt Date: 20180212
  Transmission Date: 20180509
  Serious: Yes (Other)
  Sender: FDA-Public Use
  Company Number: US-ROCHE-1489401

PATIENT

DRUGS (4)
  1. RITUXIMAB. [Suspect]
     Active Substance: RITUXIMAB
     Indication: NON-HODGKIN^S LYMPHOMA RECURRENT
     Route: 042
  2. CYCLOPHOSPHAMIDE. [Suspect]
     Active Substance: CYCLOPHOSPHAMIDE
     Indication: NON-HODGKIN^S LYMPHOMA RECURRENT
     Route: 048
  3. BORTEZOMIB [Suspect]
     Active Substance: BORTEZOMIB
     Indication: NON-HODGKIN^S LYMPHOMA RECURRENT
     Route: 042
  4. DEXAMETHASONE. [Suspect]
     Active Substance: DEXAMETHASONE
     Indication: NON-HODGKIN^S LYMPHOMA RECURRENT
     Route: 048

REACTIONS (14)
  - Anaemia [Unknown]
  - Anxiety [Unknown]
  - Nausea [Unknown]
  - Neutropenia [Unknown]
  - Thrombocytopenia [Unknown]
  - Infectious colitis [Unknown]
  - Agitation [Unknown]
  - Diarrhoea [Unknown]
  - Abdominal pain [Unknown]
  - Dyspnoea [Unknown]
  - Leukopenia [Unknown]
  - Skin infection [Unknown]
  - Peripheral sensory neuropathy [Unknown]
  - Fatigue [Unknown]
